FAERS Safety Report 8785229 (Version 2)
Quarter: 2013Q1

REPORT INFORMATION
  Report Type: Spontaneous
  Country: US (occurrence: None)
  Receive Date: 20120830
  Receipt Date: 20120926
  Transmission Date: 20140127
  Serious: Yes (Other)
  Sender: FDA-Public Use
  Company Number: US-1193788

PATIENT
  Age: 84 Year
  Sex: Male
  Weight: 80.74 kg

DRUGS (4)
  1. BSS [Suspect]
     Indication: INTRAOCULAR LENS IMPLANT
     Dosage: IO AT  DF
     Route: 031
     Dates: start: 20120731, end: 20120731
  2. BETADINE [Concomitant]
  3. LIDOCAINE [Concomitant]
  4. EPINEPHRINE [Concomitant]

REACTIONS (3)
  - Endophthalmitis [None]
  - Eye operation complication [None]
  - Intraocular pressure decreased [None]
